FAERS Safety Report 9503340 (Version 1)
Quarter: 2013Q3

REPORT INFORMATION
  Report Type: Spontaneous
  Country: FR (occurrence: FR)
  Receive Date: 20130906
  Receipt Date: 20130906
  Transmission Date: 20140515
  Serious: Yes (Hospitalization)
  Sender: FDA-Public Use
  Company Number: FR-PFIZER INC-2013253980

PATIENT
  Age: 75 Year
  Sex: Female

DRUGS (8)
  1. XANAX [Suspect]
     Dosage: 0.25 MG, 1X/DAY IN THE EVENING
     Route: 048
     Dates: end: 20130522
  2. AVLOCARDYL [Suspect]
     Dosage: 40 MG, UNK
     Route: 048
  3. SEROPRAM [Suspect]
     Dosage: 20 MG, 1X/DAY
     Route: 048
     Dates: start: 20130513, end: 20130519
  4. LAROXYL [Suspect]
     Dosage: (40 MG/ML) 10 MG, 1X/DAY
     Route: 048
     Dates: start: 20130506, end: 20130520
  5. PREVISCAN [Suspect]
     Dosage: 20 MG, 1X/DAY IN THE EVENING
     Route: 048
  6. ATACAND [Suspect]
     Dosage: 8 MG, 1X/DAY IN THE EVENING
     Route: 048
  7. IMOVANE [Suspect]
     Dosage: 1 DF, 1X/DAY IN THE EVENING
     Dates: end: 20130522
  8. DAFALGAN CODEINE [Concomitant]
     Dosage: 1 DF, 3X/DAY

REACTIONS (2)
  - Altered state of consciousness [Recovered/Resolved]
  - Hyponatraemia [Recovered/Resolved]
